FAERS Safety Report 6261223-2 (Version None)
Quarter: 2009Q3

REPORT INFORMATION
  Report Type: 
  Country: None (occurrence: None)
  Receive Date: 20090709
  Receipt Date: 20090626
  Transmission Date: 20100115
  Serious: Yes (Hospitalization)
  Sender: FDA-Public Use
  Company Number: FR-PFIZER INC-2009232508

PATIENT
  Age: 44 Year

DRUGS (15)
  1. LYRICA [Suspect]
     Dosage: UNK
     Route: 048
     Dates: start: 20090101, end: 20090608
  2. CYMBALTA [Suspect]
     Dosage: 30 MG, 1X/DAY
     Route: 048
     Dates: start: 20090401, end: 20090608
  3. TORENTAL [Suspect]
     Dosage: 400 MG, 2X/DAY
     Route: 048
     Dates: start: 20090101, end: 20090608
  4. DITROPAN [Suspect]
     Dosage: 5 MG, 1X/DAY
     Route: 048
     Dates: start: 20090101, end: 20090608
  5. LEXOMIL [Suspect]
     Dosage: UNK
     Route: 048
     Dates: start: 20090101, end: 20090608
  6. DI-ANTALVIC [Concomitant]
     Indication: PAIN
     Dosage: UNK
     Route: 048
  7. ARIXTRA [Concomitant]
     Dosage: 2.5 MG, UNK
  8. ATARAX [Concomitant]
     Dosage: 200 MG, 1X/DAY
  9. CORTANCYL [Concomitant]
     Dosage: 5 MG, 1X/DAY
  10. NEXIUM [Concomitant]
     Dosage: 20 MG, 1X/DAY
  11. OSTRAM-VIT.D3 [Concomitant]
     Dosage: 1 DF, 1X/DAY
  12. SERETIDE [Concomitant]
     Dosage: 2 DF, 2X/DAY
  13. SPIRIVA [Concomitant]
     Dosage: 2 DF, 1X/DAY
  14. POLARAMINE [Concomitant]
     Dosage: 2 MG, 3X/DAY
  15. COLD CREAM [Concomitant]
     Dosage: UNK

REACTIONS (3)
  - HEPATITIS CHOLESTATIC [None]
  - JAUNDICE [None]
  - PYREXIA [None]
